FAERS Safety Report 22969649 (Version 4)
Quarter: 2024Q3

REPORT INFORMATION
  Report Type: Report from Study
  Country: US (occurrence: US)
  Receive Date: 20230922
  Receipt Date: 20240830
  Transmission Date: 20241017
  Serious: No
  Sender: NOVARTIS
  Company Number: US-002147023-NVSC2023US200160

PATIENT

DRUGS (3)
  1. COSENTYX [Suspect]
     Active Substance: SECUKINUMAB
     Indication: Psoriasis
     Dosage: UNK
     Route: 065
  2. METHOTREXATE [Suspect]
     Active Substance: METHOTREXATE
     Indication: Psoriasis
     Dosage: UNK
     Route: 065
  3. MUPIROCIN [Suspect]
     Active Substance: MUPIROCIN
     Indication: Psoriasis
     Dosage: UNK
     Route: 065

REACTIONS (9)
  - Seborrhoeic keratosis [Unknown]
  - Papule [Unknown]
  - Pseudocyst [Unknown]
  - Skin lesion [Unknown]
  - Melanocytic naevus [Unknown]
  - Urticaria papular [Unknown]
  - Scab [Unknown]
  - Skin papilloma [Unknown]
  - Therapeutic product effect incomplete [Unknown]
